FAERS Safety Report 9215425 (Version 1)
Quarter: 2013Q2

REPORT INFORMATION
  Report Type: Report from Study
  Country: IT (occurrence: IT)
  Receive Date: 20130405
  Receipt Date: 20130405
  Transmission Date: 20140414
  Serious: Yes (Life-Threatening, Hospitalization)
  Sender: FDA-Public Use
  Company Number: IT-AMGEN-UK223712

PATIENT
  Age: 74 Year
  Sex: Male

DRUGS (8)
  1. DENOSUMAB [Suspect]
     Indication: PROSTATE CANCER
     Dosage: 120 MG, Q4WK
     Dates: start: 20070122, end: 20070323
  2. METFORMIN [Concomitant]
     Dosage: 1000 MG, TID
     Dates: start: 20020619
  3. GLIBOMET [Concomitant]
     Dosage: 5 MG, TID
     Dates: start: 20020619
  4. BICALUTAMIDE [Concomitant]
     Dosage: 50 MG, QD
     Dates: start: 20061228
  5. DOXAZOSIN MESILATE [Concomitant]
     Dosage: 2 MG, BID
     Dates: start: 20000325
  6. ESTRAMUSTINE [Concomitant]
     Dosage: 140 MG, TID
     Dates: start: 20070226
  7. LEUPRORELIN ACETATE [Concomitant]
     Dosage: 11.25 MG, Q3MO
  8. BROMELIN [Concomitant]
     Dosage: 100 MG, UNK
     Dates: start: 20070226

REACTIONS (3)
  - Acute pulmonary oedema [Recovered/Resolved]
  - Cardiac failure congestive [Recovered/Resolved]
  - Generalised oedema [Recovered/Resolved]
